FAERS Safety Report 18382726 (Version 2)
Quarter: 2020Q4

REPORT INFORMATION
  Report Type: Spontaneous
  Country: US (occurrence: US)
  Receive Date: 20201014
  Receipt Date: 20201111
  Transmission Date: 20210114
  Serious: No
  Sender: FDA-Public Use
  Company Number: US-BEH-2020123330

PATIENT
  Sex: Male
  Weight: 126.08 kg

DRUGS (7)
  1. HIZENTRA [Suspect]
     Active Substance: HUMAN IMMUNOGLOBULIN G
     Indication: IMMUNODEFICIENCY COMMON VARIABLE
     Dosage: 22 GRAM, QOW
     Route: 058
  2. STARLIX [Concomitant]
     Active Substance: NATEGLINIDE
  3. LEVAQUIN [Concomitant]
     Active Substance: LEVOFLOXACIN
  4. NOVOLIN N [Concomitant]
     Active Substance: INSULIN HUMAN
  5. INVOKANA [Concomitant]
     Active Substance: CANAGLIFLOZIN
  6. DOXYCYCLINE. [Concomitant]
     Active Substance: DOXYCYCLINE
  7. CEFDINIR. [Concomitant]
     Active Substance: CEFDINIR

REACTIONS (1)
  - Infusion site haemorrhage [Not Recovered/Not Resolved]
